FAERS Safety Report 25490512 (Version 2)
Quarter: 2025Q2

REPORT INFORMATION
  Report Type: Spontaneous
  Country: US (occurrence: US)
  Receive Date: 20250627
  Receipt Date: 20250630
  Transmission Date: 20250717
  Serious: No
  Sender: ENCUBE ETHICALS
  Company Number: US-Encube-001987

PATIENT
  Sex: Male

DRUGS (1)
  1. DICLOFENAC SODIUM [Suspect]
     Active Substance: DICLOFENAC SODIUM
     Indication: Arthritis
     Dates: start: 202202, end: 202202

REACTIONS (4)
  - Gout [Unknown]
  - Peripheral swelling [Unknown]
  - Product use issue [Unknown]
  - Hypersensitivity [Unknown]

NARRATIVE: CASE EVENT DATE: 20220201
